FAERS Safety Report 10681108 (Version 1)
Quarter: 2014Q4

REPORT INFORMATION
  Report Type: Spontaneous
  Country: US (occurrence: US)
  Receive Date: 20141229
  Receipt Date: 20141229
  Transmission Date: 20150529
  Serious: Yes (Death, Other)
  Sender: FDA-Public Use
  Company Number: PHHY2014US168124

PATIENT
  Sex: Female
  Weight: 3.4 kg

DRUGS (48)
  1. ANTITHROMBIN III [Concomitant]
     Active Substance: ANTITHROMBIN III HUMAN
     Indication: PRODUCT USED FOR UNKNOWN INDICATION
     Dosage: 125 UT
     Route: 065
     Dates: start: 20140905
  2. LASIX [Concomitant]
     Active Substance: FUROSEMIDE
     Indication: PRODUCT USED FOR UNKNOWN INDICATION
     Route: 065
     Dates: start: 20140831
  3. SODIUM BICARBONATE. [Concomitant]
     Active Substance: SODIUM BICARBONATE
  4. ATIVAN [Concomitant]
     Active Substance: LORAZEPAM
     Indication: PRODUCT USED FOR UNKNOWN INDICATION
     Route: 065
     Dates: start: 20140830, end: 20140831
  5. PARENTERAL [Concomitant]
     Indication: PRODUCT USED FOR UNKNOWN INDICATION
     Dosage: 240 ML
     Route: 041
     Dates: start: 20140825, end: 20140903
  6. VANCOMYCIN [Suspect]
     Active Substance: VANCOMYCIN
     Indication: STAPHYLOCOCCAL BACTERAEMIA
  7. ALBUMIN HUMAN [Concomitant]
     Active Substance: ALBUMIN (HUMAN)
     Dosage: 5 %
     Route: 065
     Dates: start: 20140904
  8. CALCIUM CHLORIDE. [Concomitant]
     Active Substance: CALCIUM CHLORIDE
     Indication: PRODUCT USED FOR UNKNOWN INDICATION
     Dosage: 600 MG
     Route: 065
     Dates: start: 20140903
  9. HEPARIN [Concomitant]
     Active Substance: HEPARIN SODIUM
     Indication: PRODUCT USED FOR UNKNOWN INDICATION
     Dosage: 1000 UT
     Route: 041
     Dates: start: 20140901
  10. ROCURONIUM [Concomitant]
     Active Substance: ROCURONIUM BROMIDE
     Dosage: 100 MG
     Route: 041
     Dates: start: 20140901
  11. DEXMEDETOMIDINE [Concomitant]
     Active Substance: DEXMEDETOMIDINE
     Indication: PRODUCT USED FOR UNKNOWN INDICATION
     Dosage: 200 UG
     Route: 041
     Dates: start: 20140830
  12. EPINEPHRINE. [Concomitant]
     Active Substance: EPINEPHRINE
     Indication: PRODUCT USED FOR UNKNOWN INDICATION
     Dosage: 2.5 MG
     Route: 041
     Dates: start: 20140903
  13. PARENTERAL [Concomitant]
     Dosage: 180 ML
     Route: 041
     Dates: start: 20140903, end: 20140908
  14. DIURIL [Concomitant]
     Active Substance: CHLOROTHIAZIDE
     Indication: PRODUCT USED FOR UNKNOWN INDICATION
     Dosage: 16.8 MG
     Route: 065
     Dates: start: 20140905
  15. HEPARIN [Concomitant]
     Active Substance: HEPARIN SODIUM
     Dosage: 25000 UT
     Route: 041
     Dates: start: 20140904
  16. MEROPENEM. [Concomitant]
     Active Substance: MEROPENEM
     Indication: PRODUCT USED FOR UNKNOWN INDICATION
     Route: 065
     Dates: start: 20140903, end: 20140904
  17. LACRI-LUBE S.O.P. [Concomitant]
     Indication: PRODUCT USED FOR UNKNOWN INDICATION
     Route: 065
     Dates: start: 20140902, end: 20140903
  18. BUMETANIDE. [Concomitant]
     Active Substance: BUMETANIDE
     Indication: PRODUCT USED FOR UNKNOWN INDICATION
     Dosage: 1 MG
     Route: 041
     Dates: start: 20140904
  19. ALBUMIN HUMAN [Concomitant]
     Active Substance: ALBUMIN (HUMAN)
     Indication: PRODUCT USED FOR UNKNOWN INDICATION
     Dosage: 25 %
     Route: 065
     Dates: start: 20140903
  20. FAMOTIDINE. [Concomitant]
     Active Substance: FAMOTIDINE
     Indication: PRODUCT USED FOR UNKNOWN INDICATION
     Route: 065
     Dates: start: 20140819, end: 20140903
  21. FENTANYL. [Concomitant]
     Active Substance: FENTANYL
     Indication: PRODUCT USED FOR UNKNOWN INDICATION
     Dosage: 13.5 UG
     Route: 065
     Dates: start: 20140830
  22. KETAMINE [Concomitant]
     Active Substance: KETAMINE
     Dosage: 200 MG
     Route: 041
     Dates: start: 20140901
  23. LINEZOLID. [Concomitant]
     Active Substance: LINEZOLID
     Indication: PRODUCT USED FOR UNKNOWN INDICATION
     Route: 065
     Dates: start: 20140903, end: 20140904
  24. VERSED [Concomitant]
     Active Substance: MIDAZOLAM HYDROCHLORIDE
     Indication: PRODUCT USED FOR UNKNOWN INDICATION
     Route: 065
     Dates: start: 20140831
  25. POTASSIUM CHLORIDE. [Concomitant]
     Active Substance: POTASSIUM CHLORIDE
     Indication: PRODUCT USED FOR UNKNOWN INDICATION
     Route: 065
     Dates: start: 20140904
  26. SILDENAFIL. [Concomitant]
     Active Substance: SILDENAFIL
     Indication: PRODUCT USED FOR UNKNOWN INDICATION
     Dosage: UNK
     Route: 065
     Dates: start: 20140830, end: 20140831
  27. SILDENAFIL. [Concomitant]
     Active Substance: SILDENAFIL
     Indication: PRODUCT USED FOR UNKNOWN INDICATION
     Dosage: 8 MG, UNK
     Route: 041
     Dates: start: 20140831, end: 20140902
  28. INTRALIPID [Concomitant]
     Active Substance: EGG PHOSPHOLIPIDS\GLYCERIN\SOYBEAN OIL
     Indication: PRODUCT USED FOR UNKNOWN INDICATION
     Dosage: 20 %
     Route: 041
     Dates: start: 20140819
  29. DEXTROSE IN WATER [Concomitant]
     Indication: PRODUCT USED FOR UNKNOWN INDICATION
     Dosage: 10 %
     Route: 065
     Dates: start: 20140904
  30. FENTANYL. [Concomitant]
     Active Substance: FENTANYL
     Dosage: 300 UG
     Route: 041
     Dates: start: 20140830
  31. HEPARIN FLUSH [Concomitant]
     Indication: PRODUCT USED FOR UNKNOWN INDICATION
     Route: 065
     Dates: start: 20140903
  32. KETAMINE [Concomitant]
     Active Substance: KETAMINE
     Indication: PRODUCT USED FOR UNKNOWN INDICATION
     Dosage: UNK
     Route: 065
     Dates: start: 20140901
  33. MORPHINE [Concomitant]
     Active Substance: MORPHINE
     Indication: PRODUCT USED FOR UNKNOWN INDICATION
     Route: 065
     Dates: start: 20140830
  34. SILDENAFIL. [Concomitant]
     Active Substance: SILDENAFIL
     Indication: PRODUCT USED FOR UNKNOWN INDICATION
     Dosage: 20 MG, UNK
     Route: 065
     Dates: start: 20140831
  35. BENADRYL [Concomitant]
     Active Substance: DIPHENHYDRAMINE HYDROCHLORIDE
     Indication: PRODUCT USED FOR UNKNOWN INDICATION
     Route: 065
     Dates: start: 20140831
  36. VANCOMYCIN [Suspect]
     Active Substance: VANCOMYCIN
     Indication: ENDOCARDITIS STAPHYLOCOCCAL
     Dosage: 50 MG, Q6H
     Route: 042
     Dates: start: 20140904, end: 20140911
  37. NICARDIPINE [Concomitant]
     Active Substance: NICARDIPINE
     Indication: PRODUCT USED FOR UNKNOWN INDICATION
     Dosage: 40 MG
     Route: 041
     Dates: start: 20140903
  38. CUBICIN [Suspect]
     Active Substance: DAPTOMYCIN
     Indication: OFF LABEL USE
  39. HYDROCORTISONE. [Concomitant]
     Active Substance: HYDROCORTISONE
     Indication: PRODUCT USED FOR UNKNOWN INDICATION
     Route: 065
     Dates: start: 20140830
  40. DOPAMINE [Concomitant]
     Active Substance: DOPAMINE\DOPAMINE HYDROCHLORIDE
     Indication: PRODUCT USED FOR UNKNOWN INDICATION
     Dosage: 400 MG
     Route: 041
     Dates: start: 20140830
  41. MILRINONE [Concomitant]
     Active Substance: MILRINONE
     Dosage: 20 MG
     Route: 041
     Dates: start: 20140902
  42. CUBICIN [Suspect]
     Active Substance: DAPTOMYCIN
     Indication: ENDOCARDITIS STAPHYLOCOCCAL
     Dosage: 10 MG/KG (34 MG), EVERY 24 HOURS
     Route: 042
     Dates: start: 20140905, end: 20140912
  43. CUBICIN [Suspect]
     Active Substance: DAPTOMYCIN
     Indication: STAPHYLOCOCCAL BACTERAEMIA
  44. DEXTROSE IN WATER [Concomitant]
     Dosage: 5 %
     Route: 065
     Dates: start: 20140831
  45. HEPARIN [Concomitant]
     Active Substance: HEPARIN SODIUM
     Route: 065
     Dates: start: 20140903
  46. ROCURONIUM [Concomitant]
     Active Substance: ROCURONIUM BROMIDE
     Indication: PRODUCT USED FOR UNKNOWN INDICATION
     Route: 065
     Dates: start: 20140830
  47. TROMETHAMINE. [Concomitant]
     Active Substance: TROMETHAMINE
     Indication: PRODUCT USED FOR UNKNOWN INDICATION
     Route: 065
     Dates: start: 20140903
  48. MIDAZOLAM [Concomitant]
     Active Substance: MIDAZOLAM\MIDAZOLAM HYDROCHLORIDE
     Indication: PRODUCT USED FOR UNKNOWN INDICATION
     Dosage: 40 MG
     Route: 041
     Dates: start: 20140818

REACTIONS (8)
  - Pulmonary hypertension [Fatal]
  - Cardiac arrest [Unknown]
  - Congenital diaphragmatic hernia [Fatal]
  - Hyperbilirubinaemia [Unknown]
  - Hypoxic-ischaemic encephalopathy [Fatal]
  - Sepsis [Fatal]
  - Haemorrhage intracranial [Fatal]
  - Off label use [Unknown]

NARRATIVE: CASE EVENT DATE: 20141008
